FAERS Safety Report 4366213-2 (Version None)
Quarter: 2004Q2

REPORT INFORMATION
  Report Type: 
  Country: None (occurrence: None)
  Receive Date: 20040527
  Receipt Date: 20040305
  Transmission Date: 20050107
  Serious: No
  Sender: FDA-Public Use
  Company Number: US-BRISTOL-MYERS SQUIBB COMPANY-12525515

PATIENT
  Age: 4 Decade
  Sex: Male
  Weight: 181 kg

DRUGS (1)
  1. DEFINITY [Suspect]
     Indication: ECHOCARDIOGRAM
     Dosage: BOLUS FOLLOWED BY SALINE FLUSH
     Route: 040
     Dates: start: 20040304

REACTIONS (1)
  - INFLUENZA LIKE ILLNESS [None]
